FAERS Safety Report 23556428 (Version 2)
Quarter: 2024Q1

REPORT INFORMATION
  Report Type: Report from Study
  Country: TW (occurrence: TW)
  Receive Date: 20240223
  Receipt Date: 20240329
  Transmission Date: 20240410
  Serious: Yes (Hospitalization, Other)
  Sender: FDA-Public Use
  Company Number: TW-ABBVIE-5648459

PATIENT
  Age: 54 Year
  Sex: Male
  Weight: 49 kg

DRUGS (1)
  1. HUMIRA [Suspect]
     Active Substance: ADALIMUMAB
     Indication: Crohn^s disease
     Route: 058
     Dates: start: 20230501

REACTIONS (11)
  - Abdominal pain [Unknown]
  - Scoliosis [Unknown]
  - Spinal osteoarthritis [Unknown]
  - Vascular calcification [Unknown]
  - Spinal compression fracture [Unknown]
  - Hiatus hernia [Unknown]
  - Metastasis [Unknown]
  - Oesophageal wall hypertrophy [Unknown]
  - Pulmonary mass [Unknown]
  - Emphysema [Unknown]
  - Chronic hepatitis B [Unknown]

NARRATIVE: CASE EVENT DATE: 20240212
